FAERS Safety Report 8592617-8 (Version None)
Quarter: 2012Q3

REPORT INFORMATION
  Report Type: 
  Country: None (occurrence: None)
  Receive Date: 20120814
  Receipt Date: 20120802
  Transmission Date: 20120928
  Serious: Yes (Hospitalization)
  Sender: FDA-Public Use
  Company Number: JP-ACTELION-A-CH2012-68002

PATIENT
  Age: 64 Year
  Sex: Female
  Weight: 36 kg

DRUGS (13)
  1. TRACLEER [Suspect]
     Dosage: 62.5 MG, QD
     Route: 048
     Dates: start: 20120516, end: 20120528
  2. PREDNISOLONE [Concomitant]
  3. OLMESARTAN MEDOXOMIL [Concomitant]
  4. AMLODIPINE BESYLATE [Concomitant]
  5. TRACLEER [Suspect]
     Indication: PULMONARY ARTERIAL HYPERTENSION
     Dosage: 62.5 MG, BID
     Route: 048
     Dates: start: 20120529, end: 20120628
  6. BERAPROST SODIUM [Concomitant]
  7. MAGNESIUM OXIDE [Concomitant]
  8. ERYTHROMYCIN ETHYLSUCCINATE [Concomitant]
  9. BROTIZOLAM [Concomitant]
  10. LANSOPRAZOLE [Concomitant]
  11. MIZORIBINE [Concomitant]
  12. ETHYL ICOSAPENTATE [Concomitant]
  13. OXYGEN [Concomitant]

REACTIONS (5)
  - ALANINE AMINOTRANSFERASE INCREASED [None]
  - HEPATIC FUNCTION ABNORMAL [None]
  - ASPARTATE AMINOTRANSFERASE INCREASED [None]
  - GAMMA-GLUTAMYLTRANSFERASE INCREASED [None]
  - BLOOD ALKALINE PHOSPHATASE INCREASED [None]
